FAERS Safety Report 8976642 (Version 3)
Quarter: 2013Q2

REPORT INFORMATION
  Report Type: Spontaneous
  Country: CA (occurrence: CA)
  Receive Date: 20121220
  Receipt Date: 20130506
  Transmission Date: 20140414
  Serious: Yes (Other)
  Sender: FDA-Public Use
  Company Number: CA-ELI_LILLY_AND_COMPANY-CA201212003438

PATIENT
  Age: 69 Year
  Sex: Female

DRUGS (11)
  1. FORTEO [Suspect]
     Indication: OSTEOPOROSIS
     Dosage: 20 UG, QD
     Route: 058
     Dates: start: 20121101, end: 20121107
  2. FORTEO [Suspect]
     Dosage: 20 UG, QD
     Route: 058
     Dates: start: 20121120
  3. STATEX [Concomitant]
     Dosage: UNK, UNKNOWN
     Route: 065
  4. NEXIUM [Concomitant]
     Dosage: UNK, UNKNOWN
     Route: 065
  5. COZAAR [Concomitant]
     Dosage: UNK, UNKNOWN
     Route: 065
  6. TYLENOL                                 /SCH/ [Concomitant]
     Dosage: UNK, UNKNOWN
     Route: 065
  7. VITAMIN D [Concomitant]
     Dosage: UNK, UNKNOWN
     Route: 065
  8. CALCIUM [Concomitant]
     Dosage: UNK, UNKNOWN
     Route: 065
  9. DOMPERIDONE [Concomitant]
     Dosage: UNK, UNKNOWN
     Route: 065
  10. LECTOPAM [Concomitant]
     Dosage: UNK, UNKNOWN
     Route: 065
  11. CELEBREX [Concomitant]
     Dosage: UNK, UNKNOWN
     Route: 065

REACTIONS (1)
  - Nocturia [Not Recovered/Not Resolved]
